FAERS Safety Report 6384130-3 (Version None)
Quarter: 2009Q4

REPORT INFORMATION
  Report Type: 
  Country: None (occurrence: None)
  Receive Date: 20091001
  Receipt Date: 20090925
  Transmission Date: 20100525
  Serious: Yes (Hospitalization)
  Sender: FDA-Public Use
  Company Number: US-KINGPHARMUSA00001-K200901187

PATIENT
  Sex: Female

DRUGS (14)
  1. CORGARD [Suspect]
     Dosage: 80 MG, BID
     Route: 048
     Dates: start: 20090717, end: 20090902
  2. GLUCOPHAGE [Suspect]
     Dosage: 3 G, QD
     Route: 048
     Dates: end: 20090830
  3. ALDACTAZIDE [Suspect]
     Dosage: UNK
     Route: 048
     Dates: end: 20090830
  4. TERCIAN [Suspect]
     Dosage: 12.5 MG, QD
     Route: 048
     Dates: end: 20090830
  5. ZOLPIDEM [Suspect]
     Dosage: 10 MG, QD
     Route: 048
     Dates: end: 20090830
  6. PAROXETINE [Suspect]
     Dosage: 20 MG, QD
     Route: 048
     Dates: end: 20090830
  7. ALPRAZOLAM ACTAVIS [Suspect]
     Dosage: 0.5 MG, QD
     Route: 048
     Dates: end: 20090830
  8. NOVONORM [Suspect]
     Dosage: 2 MG, TID
     Route: 048
     Dates: end: 20090830
  9. INSULIN [Suspect]
     Dosage: UNK
     Dates: end: 20090830
  10. TAHOR [Suspect]
     Dosage: 10 MG, QD
     Route: 048
  11. GABAPENTIN [Suspect]
     Dosage: 300 MG, BID
     Route: 048
     Dates: start: 20090817, end: 20090830
  12. AMLODIPINE [Suspect]
     Dosage: 10 MG, QD
     Route: 048
     Dates: start: 20090301
  13. TRANSIPEG [Concomitant]
  14. EFFERALGAN [Concomitant]

REACTIONS (9)
  - ACIDOSIS [None]
  - ANURIA [None]
  - DYSPNOEA [None]
  - HYPERGLYCAEMIA [None]
  - HYPERKALAEMIA [None]
  - MALAISE [None]
  - RENAL FAILURE ACUTE [None]
  - SINUS BRADYCARDIA [None]
  - VOMITING [None]
